FAERS Safety Report 16633277 (Version 1)
Quarter: 2019Q3

REPORT INFORMATION
  Report Type: Spontaneous
  Country: US (occurrence: US)
  Receive Date: 20190725
  Receipt Date: 20190725
  Transmission Date: 20191004
  Serious: No
  Sender: FDA-Public Use
  Company Number: US-TARO-2019TAR00292

PATIENT

DRUGS (1)
  1. FLUOCINONIDE 0.05% [Suspect]
     Active Substance: FLUOCINONIDE

REACTIONS (1)
  - Hypersensitivity [Unknown]
